FAERS Safety Report 20510182 (Version 3)
Quarter: 2022Q1

REPORT INFORMATION
  Report Type: Report from Study
  Country: DE (occurrence: DE)
  Receive Date: 20220224
  Receipt Date: 20220308
  Transmission Date: 20220423
  Serious: Yes (Hospitalization)
  Sender: FDA-Public Use
  Company Number: DE-JNJFOC-20220238754

PATIENT

DRUGS (5)
  1. SIMPONI [Suspect]
     Active Substance: GOLIMUMAB
     Indication: Colitis ulcerative
     Route: 058
  2. REMICADE [Suspect]
     Active Substance: INFLIXIMAB
     Indication: Colitis ulcerative
     Route: 042
  3. ADALIMUMAB [Suspect]
     Active Substance: ADALIMUMAB
     Indication: Colitis ulcerative
     Route: 065
  4. TOFACITINIB [Suspect]
     Active Substance: TOFACITINIB
     Indication: Colitis ulcerative
     Route: 065
  5. VEDOLIZUMAB [Suspect]
     Active Substance: VEDOLIZUMAB
     Indication: Colitis ulcerative
     Route: 065

REACTIONS (13)
  - Tuberculosis [Unknown]
  - Cytomegalovirus infection [Unknown]
  - Rectal abscess [Unknown]
  - Anal abscess [Unknown]
  - Fungal infection [Unknown]
  - Infection [Unknown]
  - Anaemia [Unknown]
  - Intestinal fistula [Unknown]
  - Infection parasitic [Unknown]
  - Stomatitis [Unknown]
  - Anal fissure [Unknown]
  - Skin ulcer [Unknown]
  - Drug ineffective [Unknown]
